FAERS Safety Report 7872156-X (Version None)
Quarter: 2011Q3

REPORT INFORMATION
  Report Type: 
  Country: None (occurrence: None)
  Receive Date: 20110927
  Receipt Date: 20110609
  Transmission Date: 20111222
  Serious: Yes (Hospitalization)
  Sender: FDA-Public Use
  Company Number: WAES 1106USA01180

PATIENT
  Sex: Male

DRUGS (2)
  1. CYCLOSPORINE [Concomitant]
  2. VYTORIN [Suspect]
     Indication: LIPIDS INCREASED
     Dosage: 10-80 MG/DAILY/PO
     Route: 048

REACTIONS (2)
  - RENAL FAILURE ACUTE [None]
  - RHABDOMYOLYSIS [None]
